FAERS Safety Report 7780996-0 (Version None)
Quarter: 2011Q3

REPORT INFORMATION
  Report Type: 
  Country: None (occurrence: None)
  Receive Date: 20110927
  Receipt Date: 20110914
  Transmission Date: 20111222
  Serious: Yes (Other)
  Sender: FDA-Public Use
  Company Number: PHHY2011JP48610

PATIENT
  Age: 86 Year
  Sex: Male

DRUGS (5)
  1. YODEL [Concomitant]
     Indication: CONSTIPATION
     Dosage: 160 MG, UNK
     Route: 048
     Dates: start: 20110408
  2. CONIEL [Concomitant]
     Indication: HYPERTENSION
     Dosage: 2 MG, QD
     Route: 048
     Dates: end: 20110810
  3. OLOPATADINE HCL [Concomitant]
     Indication: ECZEMA
     Dosage: 10 MG, UNK
     Route: 048
     Dates: start: 20110408
  4. DIOVAN HCT [Suspect]
     Indication: HYPERTENSION
     Dosage: 1 DF, DAILY
     Route: 048
     Dates: start: 20110408, end: 20110528
  5. TOPSYM [Concomitant]
     Indication: ECZEMA
     Route: 061
     Dates: start: 20110408, end: 20110611

REACTIONS (7)
  - ANGIOEDEMA [None]
  - MALAISE [None]
  - PALLOR [None]
  - FEELING ABNORMAL [None]
  - SHOCK [None]
  - CHEST DISCOMFORT [None]
  - BLOOD PRESSURE DIASTOLIC DECREASED [None]
